FAERS Safety Report 5962820-1 (Version None)
Quarter: 2008Q4

REPORT INFORMATION
  Report Type: 
  Country: None (occurrence: None)
  Receive Date: 20081124
  Receipt Date: 20081120
  Transmission Date: 20090506
  Serious: Yes (Life-Threatening)
  Sender: FDA-Public Use
  Company Number: US-WYE-H06396608

PATIENT
  Sex: Female

DRUGS (7)
  1. EFFEXOR XR [Suspect]
     Route: 048
     Dates: start: 20080401
  2. HYDROMORPHONE HCL [Concomitant]
     Dosage: 0.4 MG TAB 1-3 EVERY 4-6 HOURS PRN
     Route: 048
  3. ATENOLOL [Concomitant]
  4. TRAZODONE HCL [Concomitant]
     Dosage: 100 MG TAB / 1-2 AT HS
     Route: 048
  5. ARMOUR THYROID [Concomitant]
     Route: 048
  6. CLONIDINE [Concomitant]
     Route: 048
  7. FUROSEMIDE [Concomitant]
     Route: 048

REACTIONS (3)
  - DEPRESSED MOOD [None]
  - PRODUCT QUALITY ISSUE [None]
  - SUICIDAL IDEATION [None]
